FAERS Safety Report 4722815-2 (Version None)
Quarter: 2005Q3

REPORT INFORMATION
  Report Type: 
  Country: None (occurrence: None)
  Receive Date: 20050722
  Receipt Date: 20050711
  Transmission Date: 20060218
  Serious: Yes (Hospitalization)
  Sender: FDA-Public Use
  Company Number: US-JNJFOC-20050702322

PATIENT
  Sex: Male
  Weight: 69.4 kg

DRUGS (6)
  1. DURAGESIC-100 [Suspect]
     Route: 062
     Dates: start: 20030101
  2. LORCET-HD [Concomitant]
     Route: 048
  3. LORCET-HD [Concomitant]
     Indication: PAIN
     Route: 048
  4. PERCOCET [Concomitant]
     Route: 048
  5. PERCOCET [Concomitant]
     Indication: PAIN
     Route: 048
  6. PREDNISONE [Concomitant]
     Indication: EMPHYSEMA
     Route: 048

REACTIONS (1)
  - PNEUMONIA [None]
